FAERS Safety Report 16722606 (Version 19)
Quarter: 2022Q1

REPORT INFORMATION
  Report Type: Report from Study
  Country: US (occurrence: US)
  Receive Date: 20190820
  Receipt Date: 20220225
  Transmission Date: 20220424
  Serious: Yes (Hospitalization, Other)
  Sender: FDA-Public Use
  Company Number: US-TESARO-2019-TSO02512-US

PATIENT
  Age: 79 Year
  Sex: Male
  Weight: 82.993 kg

DRUGS (29)
  1. NIRAPARIB [Suspect]
     Active Substance: NIRAPARIB
     Indication: Bladder cancer
     Dosage: 200 MG, QD
     Route: 048
     Dates: start: 20190707, end: 20190711
  2. NIRAPARIB [Suspect]
     Active Substance: NIRAPARIB
     Indication: Lung neoplasm malignant
     Dosage: 200 MG, HS WITHOUT FOOD
     Route: 048
     Dates: start: 20190726, end: 20190814
  3. NIRAPARIB [Suspect]
     Active Substance: NIRAPARIB
     Indication: Lung carcinoma cell type unspecified stage 0
     Dosage: 100 MG, QHS WITHOUT FOOD
     Route: 048
     Dates: start: 20190913, end: 20191005
  4. NIRAPARIB [Suspect]
     Active Substance: NIRAPARIB
     Dosage: 100 MG, QHS WITHOUT FOOD
     Route: 048
     Dates: start: 20191009
  5. NIRAPARIB [Suspect]
     Active Substance: NIRAPARIB
     Dosage: 100 MG, DAILY
     Route: 048
  6. NIRAPARIB [Suspect]
     Active Substance: NIRAPARIB
     Dosage: 100 MG, QD
  7. NIRAPARIB [Suspect]
     Active Substance: NIRAPARIB
     Dosage: 200 MG, QD
     Dates: start: 20190707, end: 20191005
  8. NIRAPARIB [Suspect]
     Active Substance: NIRAPARIB
     Dosage: 100 MG, QD
     Dates: start: 20201009
  9. NIRAPARIB [Suspect]
     Active Substance: NIRAPARIB
     Dosage: 100 MG, QD
  10. NIRAPARIB [Suspect]
     Active Substance: NIRAPARIB
     Dosage: 100 MG, QD
  11. NIRAPARIB [Suspect]
     Active Substance: NIRAPARIB
     Dosage: 100 MG, QD
  12. NIRAPARIB [Suspect]
     Active Substance: NIRAPARIB
     Dosage: 100 MG, QD
  13. NIRAPARIB [Suspect]
     Active Substance: NIRAPARIB
     Dosage: 100 MG, QD
  14. NIRAPARIB [Suspect]
     Active Substance: NIRAPARIB
     Dosage: 100 MG, QD
     Route: 048
     Dates: start: 20191009
  15. NIRAPARIB [Suspect]
     Active Substance: NIRAPARIB
     Dosage: 100 MG, QD
  16. NIRAPARIB [Suspect]
     Active Substance: NIRAPARIB
     Dosage: 100 MG, QD
     Route: 048
  17. AMITRIPTYLINE [Suspect]
     Active Substance: AMITRIPTYLINE
     Indication: Product used for unknown indication
     Dosage: UNK
  18. AMLODIPINE [Suspect]
     Active Substance: AMLODIPINE BESYLATE
     Indication: Blood pressure increased
     Dosage: 5 MG
  19. AMLODIPINE [Suspect]
     Active Substance: AMLODIPINE BESYLATE
     Dosage: UNK
  20. PFIZER-BIONTECH COVID-19 VACCINE [Concomitant]
     Active Substance: TOZINAMERAN
     Indication: COVID-19 prophylaxis
     Dosage: UNK (1ST DOSE)
  21. PFIZER-BIONTECH COVID-19 VACCINE [Concomitant]
     Active Substance: TOZINAMERAN
     Dosage: UNK (2ND DOSE)
  22. LABETALOL [Concomitant]
     Active Substance: LABETALOL\LABETALOL HYDROCHLORIDE
     Indication: Blood pressure increased
     Dosage: 100 MG, QD
  23. CIALIS [Concomitant]
     Active Substance: TADALAFIL
     Indication: Product used for unknown indication
     Dosage: UNK
  24. MAGNESIUM [Concomitant]
     Active Substance: MAGNESIUM
     Indication: Product used for unknown indication
     Dosage: UNK
  25. ROSUVASTATIN [Concomitant]
     Active Substance: ROSUVASTATIN
     Indication: Product used for unknown indication
     Dosage: UNK
  26. SYNTHROID [Concomitant]
     Active Substance: LEVOTHYROXINE SODIUM
     Indication: Product used for unknown indication
     Dosage: UNK
  27. VITAMIN C [Concomitant]
     Active Substance: ASCORBIC ACID
     Indication: Product used for unknown indication
     Dosage: UNK
  28. VITAMIN D3 [Concomitant]
     Active Substance: CHOLECALCIFEROL
     Indication: Product used for unknown indication
     Dosage: UNK
  29. ZINC [Concomitant]
     Active Substance: ZINC
     Indication: Product used for unknown indication
     Dosage: UNK

REACTIONS (41)
  - Hospitalisation [Unknown]
  - Pseudomonas infection [Recovered/Resolved]
  - Neoplasm progression [Unknown]
  - Lymphoma [Recovered/Resolved]
  - Metastases to lymph nodes [Recovered/Resolved]
  - Malaise [Unknown]
  - Dehydration [Not Recovered/Not Resolved]
  - Weight increased [Unknown]
  - Memory impairment [Not Recovered/Not Resolved]
  - Tremor [Recovered/Resolved]
  - Nervous system disorder [Unknown]
  - Constipation [Recovering/Resolving]
  - Dry mouth [Unknown]
  - Dizziness [Recovered/Resolved]
  - Fatigue [Not Recovered/Not Resolved]
  - Intervertebral disc protrusion [Unknown]
  - Muscle spasms [Unknown]
  - Hyperhidrosis [Unknown]
  - Lymphadenopathy [Not Recovered/Not Resolved]
  - Underdose [Unknown]
  - Limb injury [Unknown]
  - Surgery [Unknown]
  - Muscle atrophy [Unknown]
  - Balance disorder [Unknown]
  - Asthenia [Unknown]
  - Feeling abnormal [Not Recovered/Not Resolved]
  - Musculoskeletal discomfort [Not Recovered/Not Resolved]
  - Full blood count increased [Unknown]
  - Blood pressure increased [Unknown]
  - Platelet count abnormal [Unknown]
  - Computerised tomogram abnormal [Unknown]
  - Blood pressure systolic decreased [Unknown]
  - Cataract operation [Unknown]
  - Incontinence [Not Recovered/Not Resolved]
  - Poor quality sleep [Not Recovered/Not Resolved]
  - Product use in unapproved indication [Unknown]
  - Product dose omission issue [Unknown]
  - Therapeutic response unexpected [Unknown]
  - Expired product administered [Unknown]
  - Off label use [Unknown]
  - Wrong technique in product usage process [Unknown]

NARRATIVE: CASE EVENT DATE: 20200103
